FAERS Safety Report 17082837 (Version 2)
Quarter: 2020Q1

REPORT INFORMATION
  Report Type: Spontaneous
  Country: DK (occurrence: DK)
  Receive Date: 20191127
  Receipt Date: 20200205
  Transmission Date: 20200409
  Serious: Yes (Other)
  Sender: FDA-Public Use
  Company Number: NVSC2019DK044150

PATIENT
  Sex: Female

DRUGS (1)
  1. QUETIAPINE. [Suspect]
     Active Substance: QUETIAPINE
     Indication: INSOMNIA
     Dosage: 25 MG, (AS NEEDED, MAX. 3 TABLETS PER DAY)
     Route: 065

REACTIONS (9)
  - Decreased appetite [Unknown]
  - Pruritus [Unknown]
  - Suicidal ideation [Unknown]
  - Inappropriate schedule of product administration [Unknown]
  - Eye pain [Unknown]
  - Impulse-control disorder [Unknown]
  - Feeling cold [Unknown]
  - Intentional product misuse [Unknown]
  - Product use in unapproved indication [Unknown]
